FAERS Safety Report 7964757-5 (Version None)
Quarter: 2011Q4

REPORT INFORMATION
  Report Type: 
  Country: None (occurrence: None)
  Receive Date: 20111208
  Receipt Date: 20111129
  Transmission Date: 20120403
  Serious: Yes (Disabling, Other)
  Sender: FDA-Public Use
  Company Number: AR-SANOFI-AVENTIS-2011SA079547

PATIENT
  Sex: Female

DRUGS (1)
  1. LANTUS [Suspect]
     Route: 058
     Dates: start: 20050101

REACTIONS (4)
  - GILBERT'S SYNDROME [None]
  - IRRITABLE BOWEL SYNDROME [None]
  - PURPURA [None]
  - MULTIPLE SCLEROSIS [None]
